FAERS Safety Report 16355745 (Version 2)
Quarter: 2019Q3

REPORT INFORMATION
  Report Type: Spontaneous
  Country: US (occurrence: US)
  Receive Date: 20190525
  Receipt Date: 20190911
  Transmission Date: 20191004
  Serious: Yes (Other)
  Sender: FDA-Public Use
  Company Number: US-TORRENT-00008771

PATIENT
  Age: 78 Year
  Sex: Male
  Weight: 70 kg

DRUGS (2)
  1. LOSARTAN AND HYDROCHLOROTHIAZIDE [Suspect]
     Active Substance: HYDROCHLOROTHIAZIDE\LOSARTAN POTASSIUM
     Indication: HYPERTENSION
     Dosage: SINCE LONG TIME ONCE A DAY
  2. SIMVASTATIN. [Concomitant]
     Active Substance: SIMVASTATIN
     Indication: PRODUCT USED FOR UNKNOWN INDICATION
     Dosage: UNKNOWN

REACTIONS (3)
  - Weight decreased [Unknown]
  - Feeling abnormal [Unknown]
  - Precancerous skin lesion [Recovered/Resolved]

NARRATIVE: CASE EVENT DATE: 201905
